FAERS Safety Report 7100365-6 (Version None)
Quarter: 2010Q4

REPORT INFORMATION
  Report Type: 
  Country: None (occurrence: None)
  Receive Date: 20101112
  Receipt Date: 20101110
  Transmission Date: 20110411
  Serious: Yes (Death)
  Sender: FDA-Public Use
  Company Number: US-GILEAD-2010-0033422

PATIENT
  Age: 56 Year
  Sex: Male

DRUGS (9)
  1. EMTRIVA [Suspect]
     Indication: HIV INFECTION
     Route: 048
     Dates: start: 20050616, end: 20100518
  2. VIREAD [Suspect]
     Indication: HIV INFECTION
     Route: 048
     Dates: start: 20051202, end: 20100518
  3. SUSTIVA [Suspect]
     Indication: HIV INFECTION
     Route: 048
     Dates: start: 20051202, end: 20100518
  4. DILTIAZEM [Concomitant]
  5. GEMFIBROZIL [Concomitant]
  6. ACETYLSALICYLIC ACID SRT [Concomitant]
  7. SIMVASTATIN [Concomitant]
  8. TRIAMTERENE [Concomitant]
  9. INSULIN [Concomitant]

REACTIONS (1)
  - DEATH [None]
